FAERS Safety Report 5792934-0 (Version None)
Quarter: 2008Q2

REPORT INFORMATION
  Report Type: 
  Country: None (occurrence: None)
  Receive Date: 20080626
  Receipt Date: 20080626
  Transmission Date: 20081010
  Serious: Yes (Life-Threatening, Other)
  Sender: FDA-Public Use
  Company Number: None

PATIENT
  Age: 49 Year
  Sex: Male
  Weight: 91.173 kg

DRUGS (1)
  1. DIGITEK .25 MG BERTEK [Suspect]
     Indication: HEART RATE IRREGULAR
     Dosage: .25 MG 1 TIME PER DAY PO
     Route: 048
     Dates: start: 20060105, end: 20080509

REACTIONS (7)
  - ASTHENIA [None]
  - DIARRHOEA [None]
  - DIZZINESS [None]
  - HYPOTENSION [None]
  - LOCAL SWELLING [None]
  - STOMACH DISCOMFORT [None]
  - VISION BLURRED [None]
